FAERS Safety Report 20097165 (Version 2)
Quarter: 2022Q1

REPORT INFORMATION
  Report Type: Report from Study
  Country: BR (occurrence: BR)
  Receive Date: 20211122
  Receipt Date: 20220208
  Transmission Date: 20220423
  Serious: Yes (Other)
  Sender: FDA-Public Use
  Company Number: BR-NOVARTISPH-NVSC2021BR260028

PATIENT
  Age: 78 Year
  Sex: Female

DRUGS (5)
  1. LETROZOLE [Suspect]
     Active Substance: LETROZOLE
     Indication: HER2 negative breast cancer
     Dosage: 2.5 MG
     Route: 065
     Dates: start: 2013, end: 2019
  2. FULVESTRANT [Suspect]
     Active Substance: FULVESTRANT
     Indication: HER2 negative breast cancer
     Dosage: UNK, QMO FULL DOSE, MONTHLY
     Route: 065
  3. RIBOCICLIB [Suspect]
     Active Substance: RIBOCICLIB
     Indication: HER2 negative breast cancer
     Dosage: UNK, QMO FULL DOSE, MONTHLY
     Route: 065
  4. CYCLOPHOSPHAMIDE [Concomitant]
     Active Substance: CYCLOPHOSPHAMIDE
     Indication: Product used for unknown indication
     Dosage: 4 CYCLES 21-21 DAYS
     Route: 065
     Dates: start: 2013
  5. DOCETAXEL [Concomitant]
     Active Substance: DOCETAXEL
     Indication: Breast cancer
     Dosage: 4 CYCLES 21-21 DAYS
     Route: 065
     Dates: start: 2013

REACTIONS (11)
  - Acute febrile neutrophilic dermatosis [Recovered/Resolved]
  - Metastases to bone [Unknown]
  - Metastases to liver [Unknown]
  - Neutropenia [Unknown]
  - Intestinal obstruction [Unknown]
  - Disease progression [Unknown]
  - Peritoneal lesion [Unknown]
  - Fatigue [Recovering/Resolving]
  - Abdominal pain upper [Unknown]
  - Constipation [Unknown]
  - Neutrophil count abnormal [Unknown]
